FAERS Safety Report 20065778 (Version 1)
Quarter: 2021Q4

REPORT INFORMATION
  Report Type: Spontaneous
  Country: BR (occurrence: BR)
  Receive Date: 20211113
  Receipt Date: 20211113
  Transmission Date: 20220303
  Serious: Yes (Hospitalization, Other)
  Sender: FDA-Public Use
  Company Number: None

PATIENT
  Age: 77 Year
  Sex: Female
  Weight: 93.2 kg

DRUGS (6)
  1. LOSARTAN POTASSIUM [Suspect]
     Active Substance: LOSARTAN POTASSIUM
     Dosage: 50 MILLIGRAM, QD
  2. TRESIBA [Suspect]
     Active Substance: INSULIN DEGLUDEC
     Dosage: 18 IU INTERNATIONAL UNIT(S)
  3. CHLORTHALIDONE [Suspect]
     Active Substance: CHLORTHALIDONE
     Dosage: UNK
  4. DIOSMIN [Suspect]
     Active Substance: DIOSMIN
     Dosage: UNK
  5. ROSUVASTATIN [Suspect]
     Active Substance: ROSUVASTATIN
     Dosage: UNK
  6. EZETIMIBE [Suspect]
     Active Substance: EZETIMIBE
     Dosage: UNK

REACTIONS (4)
  - Malignant melanoma [Unknown]
  - Blood glucose increased [Unknown]
  - Hypothyroidism [Unknown]
  - Erysipelas [Unknown]
